FAERS Safety Report 5175344-9 (Version None)
Quarter: 2006Q4

REPORT INFORMATION
  Report Type: 
  Country: None (occurrence: None)
  Receive Date: 20061211
  Receipt Date: 20061211
  Transmission Date: 20070319
  Serious: No
  Sender: FDA-Public Use
  Company Number: None

PATIENT
  Age: 48 Year
  Sex: Male
  Weight: 117.9352 kg

DRUGS (1)
  1. ZICAM [Suspect]
     Indication: NASOPHARYNGITIS
     Dosage: TOOK ONCE
     Dates: start: 20061205, end: 20061210

REACTIONS (3)
  - ANOSMIA [None]
  - BURNING SENSATION [None]
  - SINUS DISORDER [None]
